FAERS Safety Report 25829028 (Version 1)
Quarter: 2025Q3

REPORT INFORMATION
  Report Type: Report from Study
  Country: US (occurrence: US)
  Receive Date: 20250922
  Receipt Date: 20250922
  Transmission Date: 20251021
  Serious: No
  Sender: TRAVERE THERAPEUTICS
  Company Number: US-TRAVERE-2025TVT01310

PATIENT
  Age: 64 Year
  Sex: Male

DRUGS (5)
  1. FILSPARI [Suspect]
     Active Substance: SPARSENTAN
     Indication: IgA nephropathy
     Route: 048
     Dates: start: 20250514
  2. ATORVASTATIN [Concomitant]
     Active Substance: ATORVASTATIN
  3. DOVATO [Concomitant]
     Active Substance: DOLUTEGRAVIR SODIUM\LAMIVUDINE
  4. JARDIANCE [Concomitant]
     Active Substance: EMPAGLIFLOZIN
  5. LOSARTAN [Concomitant]
     Active Substance: LOSARTAN

REACTIONS (5)
  - Contraindicated product administered [Unknown]
  - Lipase increased [Unknown]
  - Mean cell volume increased [None]
  - Mean cell haemoglobin increased [None]
  - Glucose urine present [Unknown]

NARRATIVE: CASE EVENT DATE: 20250514
